FAERS Safety Report 10697841 (Version 1)
Quarter: 2015Q1

REPORT INFORMATION
  Report Type: Spontaneous
  Country: US (occurrence: None)
  Receive Date: 20150107
  Receipt Date: 20150107
  Transmission Date: 20150721
  Serious: Yes (Hospitalization)
  Sender: FDA-Public Use
  Company Number: None

PATIENT
  Age: 4 Year
  Sex: Female

DRUGS (1)
  1. METHOTREXATE [Suspect]
     Active Substance: METHOTREXATE
     Dates: end: 20141222

REACTIONS (7)
  - Pain [None]
  - Thrombocytopenia [None]
  - Febrile neutropenia [None]
  - Anaemia [None]
  - Renal failure [None]
  - Eating disorder [None]
  - Mucosal inflammation [None]

NARRATIVE: CASE EVENT DATE: 20150101
